FAERS Safety Report 8557555-5 (Version None)
Quarter: 2012Q3

REPORT INFORMATION
  Report Type: 
  Country: None (occurrence: None)
  Receive Date: 20120801
  Receipt Date: 20120720
  Transmission Date: 20120928
  Serious: Yes (Hospitalization, Other)
  Sender: FDA-Public Use
  Company Number: IT-CELGENEUS-083-21660-12072348

PATIENT
  Sex: Female

DRUGS (7)
  1. CITALOPRAM HYDROBROMIDE [Concomitant]
     Route: 065
  2. ATENOLOL [Concomitant]
     Route: 065
  3. ENOXAPARIN SODIUM [Concomitant]
     Route: 065
  4. ABRAXANE [Suspect]
     Indication: OVARIAN CANCER
     Route: 041
     Dates: start: 20120118, end: 20120118
  5. ALPRAZOLAM [Concomitant]
     Route: 065
  6. URSODIOL [Concomitant]
     Route: 065
  7. CARBOPLATIN [Concomitant]
     Route: 065

REACTIONS (3)
  - HYPOTENSION [None]
  - BRADYCARDIA [None]
  - LARYNGOTRACHEAL OEDEMA [None]
